FAERS Safety Report 5142427-9 (Version None)
Quarter: 2006Q4

REPORT INFORMATION
  Report Type: 
  Country: None (occurrence: None)
  Receive Date: 20061102
  Receipt Date: 20060830
  Transmission Date: 20070319
  Serious: Yes (Hospitalization)
  Sender: FDA-Public Use
  Company Number: FR-ELI_LILLY_AND_COMPANY-FR200608006744

PATIENT
  Age: 51 Year
  Sex: Female
  Weight: 95 kg

DRUGS (9)
  1. ALIMTA [Suspect]
     Indication: LUNG ADENOCARCINOMA
     Dosage: 500 MG/M2, OTHER
     Route: 042
     Dates: start: 20060705, end: 20060817
  2. FOLIC ACID [Concomitant]
     Indication: VITAMIN SUPPLEMENTATION
     Route: 048
     Dates: start: 20060701, end: 20060801
  3. VITAMIN B-12 [Concomitant]
     Indication: VITAMIN SUPPLEMENTATION
     Route: 030
     Dates: start: 20060701, end: 20060801
  4. ARANESP                                 /UNK/ [Concomitant]
     Indication: ANAEMIA PROPHYLAXIS
     Dosage: 1 D/F, WEEKLY (1/W)
     Route: 058
     Dates: start: 20060605, end: 20060705
  5. EPREX [Concomitant]
     Indication: ANAEMIA PROPHYLAXIS
     Route: 058
     Dates: start: 20060712, end: 20060807
  6. PREDNISONE TAB [Concomitant]
     Indication: PROPHYLAXIS OF NAUSEA AND VOMITING
     Dosage: 60 MG, DAILY (1/D)
     Route: 048
     Dates: start: 20060705, end: 20060817
  7. NORSET [Concomitant]
     Indication: DEPRESSION
     Route: 048
  8. DEPAKOTE [Concomitant]
     Indication: DEPRESSION
     Route: 048
  9. ATARAX [Concomitant]
     Indication: DEPRESSION
     Route: 048

REACTIONS (5)
  - ALANINE AMINOTRANSFERASE INCREASED [None]
  - ASPARTATE AMINOTRANSFERASE INCREASED [None]
  - PAPILLOEDEMA [None]
  - PARAESTHESIA [None]
  - TRANSAMINASES INCREASED [None]
